FAERS Safety Report 7755133-9 (Version None)
Quarter: 2011Q3

REPORT INFORMATION
  Report Type: 
  Country: None (occurrence: None)
  Receive Date: 20110916
  Receipt Date: 20110913
  Transmission Date: 20111222
  Serious: No
  Sender: FDA-Public Use
  Company Number: US-PFIZER INC-2011215944

PATIENT
  Sex: Female

DRUGS (2)
  1. LYRICA [Suspect]
     Dosage: 125 MG
  2. NORVASC [Suspect]
     Dosage: UNK

REACTIONS (1)
  - ASPARTATE AMINOTRANSFERASE INCREASED [None]
